FAERS Safety Report 7519055-0 (Version None)
Quarter: 2011Q2

REPORT INFORMATION
  Report Type: 
  Country: None (occurrence: None)
  Receive Date: 20110602
  Receipt Date: 20110524
  Transmission Date: 20111010
  Serious: Yes (Hospitalization)
  Sender: FDA-Public Use
  Company Number: FR-ASTRAZENECA-2011SE31831

PATIENT
  Age: 60 Year
  Sex: Female

DRUGS (13)
  1. CRESTOR [Suspect]
     Route: 048
     Dates: start: 20101101
  2. ACETAMINOPHEN [Concomitant]
  3. NEXIUM [Suspect]
     Route: 048
     Dates: start: 20101101
  4. METHOTREXATE SODIUM [Suspect]
     Route: 065
     Dates: start: 20090901
  5. AMLODIPINE [Suspect]
     Route: 048
     Dates: start: 20101101
  6. ASPIRIN [Concomitant]
  7. TRAMADOL HCL [Suspect]
     Route: 048
     Dates: start: 20101101
  8. FOLIC ACID [Concomitant]
  9. PREDNISONE [Suspect]
     Route: 048
     Dates: start: 20090901
  10. PREDNISONE [Suspect]
     Route: 048
     Dates: start: 20110408
  11. MOTILIUM [Concomitant]
  12. ZOPICLONE [Concomitant]
  13. OROCAL D3 [Concomitant]

REACTIONS (2)
  - HEADACHE [None]
  - VISION BLURRED [None]
